FAERS Safety Report 8869144 (Version 1)
Quarter: 2012Q4

REPORT INFORMATION
  Report Type: 
  Country: US (occurrence: US)
  Receive Date: 20121023
  Receipt Date: 20121023
  Transmission Date: 20130627
  Serious: No
  Sender: FDA-Public Use
  Company Number: US-AMGEN-USASP2012054447

PATIENT
  Age: 67 Year
  Sex: Male
  Weight: 73.47 kg

DRUGS (10)
  1. ENBREL [Suspect]
     Indication: PRODUCT USED FOR UNKNOWN INDICATION
     Dosage: 50 mg, qwk
     Route: 058
  2. PLAQUENIL                          /00072602/ [Concomitant]
     Dosage: 200 mg
  3. METHOTREXATE [Concomitant]
     Dosage: 2.5 mg
  4. LOVASTATIN [Concomitant]
     Dosage: 10 mg
  5. LISINOPRIL [Concomitant]
     Dosage: 10 mg
  6. VERAPAMIL [Concomitant]
     Dosage: 100 mg ER
  7. RANITIDINE [Concomitant]
     Dosage: 150 mg
  8. CALCIUM D                          /00944201/ [Concomitant]
     Dosage: UNK
  9. ASPIRIN [Concomitant]
     Dosage: 81 mg
  10. PLAVIX [Concomitant]
     Dosage: 300 mg

REACTIONS (1)
  - Chondropathy [Unknown]
